FAERS Safety Report 8812449 (Version 3)
Quarter: 2014Q3

REPORT INFORMATION
  Report Type: Report from Study
  Country: US (occurrence: US)
  Receive Date: 20120927
  Receipt Date: 20140910
  Transmission Date: 20150326
  Serious: Yes (Death, Hospitalization, Other)
  Sender: FDA-Public Use
  Company Number: US-ROCHE-1126629

PATIENT
  Age: 55 Year
  Sex: Female

DRUGS (4)
  1. AVASTIN [Suspect]
     Active Substance: BEVACIZUMAB
     Indication: METASTASES TO LUNG
  2. AVASTIN [Suspect]
     Active Substance: BEVACIZUMAB
     Indication: BREAST CANCER FEMALE
     Dosage: 10 MG/KG
     Route: 042
     Dates: start: 20050922, end: 20051117
  3. AVASTIN [Suspect]
     Active Substance: BEVACIZUMAB
     Indication: METASTASES TO LIVER
  4. ABRAXANE [Concomitant]
     Active Substance: PACLITAXEL
     Route: 065
     Dates: start: 20050921

REACTIONS (9)
  - Disease progression [Unknown]
  - Death [Fatal]
  - Epistaxis [Unknown]
  - Off label use [Unknown]
  - Neoplasm [Unknown]
  - Dyspnoea [Unknown]
  - Hepatomegaly [Unknown]
  - Rash erythematous [Unknown]
  - Cough [Unknown]

NARRATIVE: CASE EVENT DATE: 20051101
